FAERS Safety Report 13416797 (Version 2)
Quarter: 2017Q2

REPORT INFORMATION
  Report Type: Spontaneous
  Country: US (occurrence: US)
  Receive Date: 20170407
  Receipt Date: 20170518
  Transmission Date: 20170830
  Serious: Yes (Other)
  Sender: FDA-Public Use
  Company Number: US-JAZZ-2017-US-004296

PATIENT
  Sex: Male

DRUGS (3)
  1. PRIALT [Suspect]
     Active Substance: ZICONOTIDE ACETATE
     Indication: PAIN
     Dosage: 0.104 ?G, QH
     Route: 037
  2. PRIALT [Suspect]
     Active Substance: ZICONOTIDE ACETATE
     Indication: RHEUMATOID ARTHRITIS
  3. PRIALT [Suspect]
     Active Substance: ZICONOTIDE ACETATE
     Indication: CHRONIC OBSTRUCTIVE PULMONARY DISEASE

REACTIONS (1)
  - No adverse event [Unknown]
